FAERS Safety Report 6435063-5 (Version None)
Quarter: 2009Q4

REPORT INFORMATION
  Report Type: 
  Country: None (occurrence: None)
  Receive Date: 20091109
  Receipt Date: 20091109
  Transmission Date: 20100525
  Serious: No
  Sender: FDA-Public Use
  Company Number: None

PATIENT
  Age: 54 Year
  Sex: Female
  Weight: 59.8748 kg

DRUGS (2)
  1. AMBIEN [Suspect]
     Indication: INSOMNIA
     Dosage: 10MG FOR SLEEP PO
     Route: 048
     Dates: start: 20091001, end: 20091101
  2. AMBIEN [Suspect]
     Indication: INSOMNIA
     Dosage: 10 MG FOR SLEEP PO
     Route: 048
     Dates: start: 20091001, end: 20091101

REACTIONS (3)
  - DRUG EFFECT DECREASED [None]
  - DRUG INEFFECTIVE [None]
  - PRODUCT SUBSTITUTION ISSUE [None]
